FAERS Safety Report 6637591-6 (Version None)
Quarter: 2010Q1

REPORT INFORMATION
  Report Type: 
  Country: None (occurrence: None)
  Receive Date: 20100317
  Receipt Date: 20100309
  Transmission Date: 20100710
  Serious: Yes (Hospitalization)
  Sender: FDA-Public Use
  Company Number: FR-WYE-G05712410

PATIENT
  Sex: Male

DRUGS (10)
  1. EFFEXOR [Suspect]
     Indication: DEPRESSION
     Dosage: UNKNOWN
     Route: 048
  2. SERESTA [Suspect]
     Indication: ANXIETY
     Dosage: UNKNOWN
     Dates: start: 20090101
  3. MEPRONIZINE [Suspect]
     Indication: INSOMNIA
     Dosage: UNKNOWN
  4. TAHOR [Concomitant]
     Dosage: UNKNOWN
     Dates: start: 20090101, end: 20090701
  5. KARDEGIC [Concomitant]
     Indication: ARTERIOSCLEROSIS
     Dosage: UNKNOWN
     Dates: start: 20090101
  6. CALCIUM CARBONATE [Concomitant]
     Indication: CALCIUM DEFICIENCY
     Dosage: UNKNOWN
     Dates: start: 20090101
  7. ACTONEL [Concomitant]
     Indication: OSTEOPOROSIS
     Dosage: UNKNOWN
     Dates: start: 20090101
  8. CORTANCYL [Suspect]
     Indication: TEMPORAL ARTERITIS
     Dosage: UNKNOWN
     Dates: start: 20090101, end: 20090401
  9. CORTANCYL [Suspect]
     Dosage: UNKNOWN (REDUCED DOSE)
     Dates: start: 20090401
  10. DIFFU K [Concomitant]
     Dosage: UNKNOWN
     Dates: start: 20090101

REACTIONS (7)
  - CONDITION AGGRAVATED [None]
  - HYPERTENSION [None]
  - MENTAL STATUS CHANGES [None]
  - MYOPATHY [None]
  - OEDEMA PERIPHERAL [None]
  - TENDON RUPTURE [None]
  - TREMOR [None]
